FAERS Safety Report 8120802-8 (Version None)
Quarter: 2012Q1

REPORT INFORMATION
  Report Type: 
  Country: None (occurrence: None)
  Receive Date: 20120207
  Receipt Date: 20120130
  Transmission Date: 20120608
  Serious: Yes (Hospitalization, Other)
  Sender: FDA-Public Use
  Company Number: US-BAYER-2011-067580

PATIENT
  Age: 37 Year
  Sex: Female
  Weight: 108.84 kg

DRUGS (5)
  1. CALCIUM [Concomitant]
  2. DROSPIRENONE AND ETHINYL ESTRADIOL [Suspect]
     Indication: PRODUCT USED FOR UNKNOWN INDICATION
     Dosage: UNK
     Dates: start: 20021001, end: 20100201
  3. MULTI-VITAMIN [Concomitant]
  4. IBUPROFEN (ADVIL) [Concomitant]
  5. YASMIN [Suspect]
     Dosage: UNK
     Dates: start: 20021001, end: 20100201

REACTIONS (4)
  - GALLBLADDER DISORDER [None]
  - UTERINE LEIOMYOMA [None]
  - PANCREATIC INJURY [None]
  - CHOLECYSTITIS CHRONIC [None]
